FAERS Safety Report 5215460-6 (Version None)
Quarter: 2007Q1

REPORT INFORMATION
  Report Type: 
  Country: None (occurrence: None)
  Receive Date: 20070119
  Receipt Date: 20070119
  Transmission Date: 20070707
  Serious: Yes (Life-Threatening, Hospitalization)
  Sender: FDA-Public Use
  Company Number: None

PATIENT
  Age: 60 Year
  Sex: Male

DRUGS (1)
  1. BUPIVACAINE [Suspect]
     Indication: SURGERY
     Dosage: 10 ML -ABOUT 50 MG- ONE TIME DOSE IV
     Route: 042
     Dates: start: 20070102

REACTIONS (3)
  - CARDIO-RESPIRATORY ARREST [None]
  - TORSADE DE POINTES [None]
  - VENTRICULAR TACHYCARDIA [None]
